FAERS Safety Report 8406798-X (Version None)
Quarter: 2012Q2

REPORT INFORMATION
  Report Type: 
  Country: None (occurrence: None)
  Receive Date: 20120604
  Receipt Date: 20120529
  Transmission Date: 20120825
  Serious: Yes (Death)
  Sender: FDA-Public Use
  Company Number: GB-SANOFI-AVENTIS-2012SA038737

PATIENT
  Age: 68 Year
  Sex: Male
  Weight: 131 kg

DRUGS (8)
  1. MORPHINE SULFATE [Concomitant]
     Route: 048
     Dates: start: 20120430
  2. CABAZITAXEL [Suspect]
     Indication: PROSTATE CANCER METASTATIC
     Route: 042
     Dates: start: 20120517, end: 20120517
  3. NAPROXEN [Concomitant]
     Route: 048
     Dates: start: 20120430
  4. ACETAMINOPHEN AND CODEINE PHOSPHATE [Concomitant]
     Route: 048
  5. LANSOPRAZOLE [Concomitant]
     Route: 048
  6. PREDNISOLONE [Suspect]
     Indication: PROSTATE CANCER METASTATIC
     Route: 048
     Dates: start: 20120517, end: 20120517
  7. ADCAL-D3 [Concomitant]
     Route: 048
  8. BUDESONIDE/FORMOTEROL [Concomitant]
     Route: 048

REACTIONS (1)
  - DEATH [None]
